FAERS Safety Report 5845503-8 (Version None)
Quarter: 2008Q3

REPORT INFORMATION
  Report Type: 
  Country: None (occurrence: None)
  Receive Date: 20080814
  Receipt Date: 20080804
  Transmission Date: 20090109
  Serious: Yes (Other)
  Sender: FDA-Public Use
  Company Number: VE-ROCHE-579619

PATIENT
  Sex: Female
  Weight: 52 kg

DRUGS (2)
  1. ROACCUTAN [Suspect]
     Indication: ACNE
     Route: 065
  2. ROACCUTAN [Suspect]
     Dosage: DOSE DECREASED
     Route: 065

REACTIONS (1)
  - PHARYNGEAL NEOPLASM [None]
